FAERS Safety Report 6145194-5 (Version None)
Quarter: 2009Q2

REPORT INFORMATION
  Report Type: 
  Country: None (occurrence: None)
  Receive Date: 20090406
  Receipt Date: 20090331
  Transmission Date: 20091009
  Serious: Yes (Life-Threatening, Hospitalization)
  Sender: FDA-Public Use
  Company Number: AU-JNJFOC-20090103368

PATIENT
  Sex: Female
  Weight: 86 kg

DRUGS (1)
  1. RISPERDAL CONSTA [Suspect]
     Indication: SCHIZOAFFECTIVE DISORDER
     Route: 030

REACTIONS (2)
  - ATRIAL FIBRILLATION [None]
  - MYOCARDIAL INFARCTION [None]
